FAERS Safety Report 16044941 (Version 1)
Quarter: 2019Q1

REPORT INFORMATION
  Report Type: Spontaneous
  Country: FR (occurrence: FR)
  Receive Date: 20190307
  Receipt Date: 20190307
  Transmission Date: 20190418
  Serious: Yes (Death, Other)
  Sender: FDA-Public Use
  Company Number: FR-ACCORD-110783

PATIENT
  Age: 66 Year
  Sex: Male
  Weight: 70 kg

DRUGS (17)
  1. FLUCONAZOLE. [Concomitant]
     Active Substance: FLUCONAZOLE
     Route: 048
     Dates: start: 20180802
  2. ATARAX [Concomitant]
     Active Substance: HYDROXYZINE HYDROCHLORIDE
     Dosage: STRENGTH:25MG
     Route: 048
     Dates: start: 201807
  3. ATROVENT [Concomitant]
     Active Substance: IPRATROPIUM BROMIDE
     Route: 055
     Dates: start: 20180731, end: 20180806
  4. VENTOLINE [Concomitant]
     Active Substance: ALBUTEROL
     Route: 055
     Dates: start: 20180731, end: 20180806
  5. ALIMTA [Suspect]
     Active Substance: PEMETREXED DISODIUM
     Indication: LUNG CANCER METASTATIC
     Dosage: STRENGTH:500MG
     Route: 042
     Dates: start: 20180801, end: 20180801
  6. CRESTOR [Concomitant]
     Active Substance: ROSUVASTATIN CALCIUM
     Dosage: STRENGTH:10 MG
     Route: 048
     Dates: end: 20180807
  7. EMEND [Concomitant]
     Active Substance: APREPITANT
     Route: 048
     Dates: start: 20180801, end: 20180803
  8. FOLIC ACID. [Concomitant]
     Active Substance: FOLIC ACID
     Route: 048
     Dates: start: 201807
  9. STILNOX [Concomitant]
     Active Substance: ZOLPIDEM TARTRATE
     Dosage: STRENGTH:10MG
     Route: 048
     Dates: start: 20180801
  10. LOVENOX [Concomitant]
     Active Substance: ENOXAPARIN SODIUM
     Dosage: STRENGTH:4000 IU ANTI-XA / 0.4 ML
     Route: 058
     Dates: start: 20180801
  11. KYTRIL [Concomitant]
     Active Substance: GRANISETRON HYDROCHLORIDE
     Route: 042
     Dates: start: 20180801, end: 20180801
  12. PRIMPERAN [Concomitant]
     Active Substance: METOCLOPRAMIDE HYDROCHLORIDE
     Dosage: STRENGTH:10MG
     Route: 048
     Dates: start: 20180802
  13. SOLU-MEDROL [Concomitant]
     Active Substance: METHYLPREDNISOLONE SODIUM SUCCINATE
     Route: 042
     Dates: start: 20180801, end: 20180801
  14. ZOLEDRONIC ACID [Concomitant]
     Active Substance: ZOLEDRONIC ACID
     Route: 042
     Dates: start: 20180803, end: 20180803
  15. SOLUPRED [Concomitant]
     Route: 048
     Dates: start: 20180801, end: 20180804
  16. ONDANSETRON [Concomitant]
     Active Substance: ONDANSETRON
     Route: 048
     Dates: start: 20180803, end: 20180807
  17. CISPLATIN ACCORD [Suspect]
     Active Substance: CISPLATIN
     Indication: LUNG CANCER METASTATIC
     Route: 042
     Dates: start: 20180801, end: 20180801

REACTIONS (2)
  - Acute kidney injury [Not Recovered/Not Resolved]
  - Bone marrow failure [Fatal]

NARRATIVE: CASE EVENT DATE: 20180806
